FAERS Safety Report 16312111 (Version 1)
Quarter: 2019Q2

REPORT INFORMATION
  Report Type: Spontaneous
  Country: US (occurrence: US)
  Receive Date: 20190515
  Receipt Date: 20190515
  Transmission Date: 20190711
  Serious: Yes (Other)
  Sender: FDA-Public Use
  Company Number: US-ABBVIE-19K-163-2777046-00

PATIENT
  Age: 26 Year
  Sex: Female
  Weight: 73.55 kg

DRUGS (3)
  1. METOPROLOL. [Concomitant]
     Active Substance: METOPROLOL
     Indication: PRODUCT USED FOR UNKNOWN INDICATION
  2. GLUCAGEN [Suspect]
     Active Substance: GLUCAGON HYDROCHLORIDE
     Indication: PREMEDICATION
     Route: 042
     Dates: start: 2019, end: 2019
  3. HUMIRA [Suspect]
     Active Substance: ADALIMUMAB
     Indication: CROHN^S DISEASE
     Route: 058
     Dates: start: 201805

REACTIONS (19)
  - Injection site haemorrhage [Recovered/Resolved]
  - Migraine [Recovered/Resolved]
  - Migraine with aura [Not Recovered/Not Resolved]
  - Presyncope [Recovered/Resolved]
  - Tooth impacted [Recovering/Resolving]
  - Abdominal pain upper [Recovering/Resolving]
  - Tooth fracture [Recovered/Resolved]
  - Nausea [Recovering/Resolving]
  - Nausea [Unknown]
  - Vomiting [Recovered/Resolved]
  - Gingival disorder [Not Recovered/Not Resolved]
  - Irritability [Unknown]
  - Device issue [Unknown]
  - Ear pain [Recovering/Resolving]
  - Pain [Recovering/Resolving]
  - Hypophagia [Recovering/Resolving]
  - Helicobacter infection [Recovered/Resolved]
  - Oral pain [Recovering/Resolving]
  - Dizziness [Unknown]

NARRATIVE: CASE EVENT DATE: 20180501
